FAERS Safety Report 21173546 (Version 1)
Quarter: 2022Q3

REPORT INFORMATION
  Report Type: Spontaneous
  Country: US (occurrence: US)
  Receive Date: 20220804
  Receipt Date: 20220804
  Transmission Date: 20221027
  Serious: No
  Sender: FDA-Public Use
  Company Number: US-MYLANLABS-2022M1082525

PATIENT
  Sex: Male
  Weight: 81.65 kg

DRUGS (3)
  1. FENTANYL TRANSDERMAL SYSTEM [Suspect]
     Active Substance: FENTANYL
     Indication: Cauda equina syndrome
     Dosage: 0.1 MILLIGRAM, QH
     Route: 062
  2. FENTANYL TRANSDERMAL SYSTEM [Suspect]
     Active Substance: FENTANYL
     Dosage: 0.1 MILLIGRAM, QH
     Route: 062
  3. HYDROCODONE [Concomitant]
     Active Substance: HYDROCODONE
     Dosage: 25 MILLIGRAM (10-3)
     Route: 065

REACTIONS (3)
  - Wrong technique in product usage process [Unknown]
  - Product adhesion issue [Unknown]
  - Product quality issue [Unknown]
